FAERS Safety Report 18174819 (Version 1)
Quarter: 2020Q3

REPORT INFORMATION
  Report Type: Spontaneous
  Country: NL (occurrence: BE)
  Receive Date: 20200820
  Receipt Date: 20200820
  Transmission Date: 20201103
  Serious: Yes (Other)
  Sender: FDA-Public Use
  Company Number: BE-ENDO PHARMACEUTICALS INC-2020-005518

PATIENT
  Age: 31 Year
  Sex: Male

DRUGS (1)
  1. TESTIM [Suspect]
     Active Substance: TESTOSTERONE
     Indication: TRANSGENDER HORMONAL THERAPY
     Dosage: UNK UNKNOWN, UNKNOWN
     Route: 065

REACTIONS (3)
  - Invasive breast carcinoma [Unknown]
  - Off label use [Unknown]
  - Intraductal proliferative breast lesion [Unknown]
